FAERS Safety Report 4860715-8 (Version None)
Quarter: 2005Q4

REPORT INFORMATION
  Report Type: 
  Country: None (occurrence: None)
  Receive Date: 20051220
  Receipt Date: 20051114
  Transmission Date: 20060501
  Serious: Yes (Hospitalization)
  Sender: FDA-Public Use
  Company Number: JP-BOEHRINGER INGELHEIM PHARMACEUTICALS, INC.-2005-BP-20474NB

PATIENT
  Sex: Male
  Weight: 56 kg

DRUGS (1)
  1. MICARDIS [Suspect]
     Indication: HYPERTENSION
     Route: 048
     Dates: start: 20051023, end: 20051114

REACTIONS (3)
  - DIZZINESS [None]
  - GASTROINTESTINAL HAEMORRHAGE [None]
  - OCCULT BLOOD POSITIVE [None]
